FAERS Safety Report 5558409-9 (Version None)
Quarter: 2007Q4

REPORT INFORMATION
  Report Type: 
  Country: None (occurrence: None)
  Receive Date: 20071214
  Receipt Date: 20071101
  Transmission Date: 20080405
  Serious: No
  Sender: FDA-Public Use
  Company Number: US-ABBOTT-06P-163-0345007-00

PATIENT
  Sex: Female
  Weight: 83.99 kg

DRUGS (11)
  1. HUMIRA [Suspect]
     Indication: CROHN'S DISEASE
     Route: 058
     Dates: start: 20060905, end: 20070101
  2. HUMIRA [Suspect]
     Dosage: SYRINGE
     Dates: start: 20070501
  3. HUMIRA [Suspect]
     Indication: CROHN'S DISEASE
     Dates: start: 20070101, end: 20070501
  4. MERCAPTOPURINE [Concomitant]
     Indication: DRUG USE FOR UNKNOWN INDICATION
     Route: 048
  5. SULFASALAZINE [Concomitant]
     Indication: DRUG USE FOR UNKNOWN INDICATION
     Route: 048
  6. BUPROPION HYDROCHLORIDE [Concomitant]
     Indication: DRUG USE FOR UNKNOWN INDICATION
     Route: 048
  7. FLUOXETINE HYDROCHLORIDE [Concomitant]
     Indication: DRUG USE FOR UNKNOWN INDICATION
     Route: 048
  8. VITAMIN CAP [Concomitant]
     Indication: DRUG USE FOR UNKNOWN INDICATION
  9. FOLIC ACID [Concomitant]
     Indication: DRUG USE FOR UNKNOWN INDICATION
  10. ZINC [Concomitant]
     Indication: DRUG USE FOR UNKNOWN INDICATION
  11. LANSOPRAZOLE [Concomitant]
     Indication: DYSPEPSIA
     Route: 048

REACTIONS (2)
  - ACCIDENTAL EXPOSURE [None]
  - INJECTION SITE PAIN [None]
